FAERS Safety Report 7712795-X (Version None)
Quarter: 2011Q3

REPORT INFORMATION
  Report Type: 
  Country: None (occurrence: None)
  Receive Date: 20110826
  Receipt Date: 20110608
  Transmission Date: 20111222
  Serious: Yes (Hospitalization)
  Sender: FDA-Public Use
  Company Number: DE-GLAXOSMITHKLINE-B0725936A

PATIENT
  Sex: Female
  Weight: 72.4 kg

DRUGS (5)
  1. BLINDED TRIAL MEDICATION [Suspect]
     Indication: OVARIAN CANCER
     Dosage: 800MG CYCLIC
     Route: 048
     Dates: start: 20110524
  2. IBUPROFEN [Concomitant]
     Indication: PAIN
     Dosage: 600MG PER DAY
     Route: 048
     Dates: start: 20110530
  3. ALOXI [Concomitant]
     Indication: VOMITING
     Dosage: 250MCG PER DAY
     Route: 042
     Dates: start: 20110502, end: 20110506
  4. TOPOTECAN [Suspect]
     Indication: OVARIAN CANCER
     Dosage: 2.2MG CYCLIC
     Route: 042
     Dates: start: 20110502
  5. ERYPO [Concomitant]
     Indication: ANAEMIA
     Route: 058
     Dates: start: 20110307

REACTIONS (1)
  - METASTASES TO CENTRAL NERVOUS SYSTEM [None]
